FAERS Safety Report 19818438 (Version 2)
Quarter: 2022Q1

REPORT INFORMATION
  Report Type: Spontaneous
  Country: US (occurrence: US)
  Receive Date: 20210911
  Receipt Date: 20220122
  Transmission Date: 20220423
  Serious: Yes (Other)
  Sender: FDA-Public Use
  Company Number: US-TEVA-2021-US-1950813

PATIENT
  Age: 71 Year
  Sex: Male
  Weight: 99.79 kg

DRUGS (13)
  1. HYDROCHLOROTHIAZIDE\VALSARTAN [Suspect]
     Active Substance: HYDROCHLOROTHIAZIDE\VALSARTAN
     Indication: Hypertension
     Dosage: 160MG/12.5MG
     Route: 065
     Dates: start: 20170317, end: 20190108
  2. HYDROCHLOROTHIAZIDE\VALSARTAN [Suspect]
     Active Substance: HYDROCHLOROTHIAZIDE\VALSARTAN
     Indication: Hypertension
     Dosage: 80MG/12.5MG
     Route: 065
     Dates: start: 20190720, end: 20200221
  3. HYDROCHLOROTHIAZIDE\VALSARTAN [Suspect]
     Active Substance: HYDROCHLOROTHIAZIDE\VALSARTAN
     Indication: Hypertension
     Dosage: 80MG/12.5MG
     Route: 065
     Dates: start: 20201028, end: 20210126
  4. VENLAFAXINE [Concomitant]
     Active Substance: VENLAFAXINE HYDROCHLORIDE
     Indication: Depression
     Dosage: 450MG DAILY
     Dates: start: 2012
  5. ARMODAFINIL [Concomitant]
     Active Substance: ARMODAFINIL
     Indication: Attention deficit hyperactivity disorder
     Dosage: 250 MG DAILY, AS NEEDED
     Route: 048
     Dates: start: 2015
  6. GABAPENTIN [Concomitant]
     Active Substance: GABAPENTIN
     Indication: Pain
     Dosage: 300 MG 3 TIMES DAILY PRN
     Dates: start: 2001, end: 2019
  7. METHYLPHENIDATE [Concomitant]
     Active Substance: METHYLPHENIDATE
     Indication: Attention deficit hyperactivity disorder
     Dosage: 20MG DAILY, AS NEEDED
     Dates: start: 2012
  8. PANTOPRAZOLE [Concomitant]
     Active Substance: PANTOPRAZOLE
     Indication: Gastrooesophageal reflux disease
     Dosage: 40MG DAILY, 5 DAYS A WEEK
     Dates: start: 2012, end: 2020
  9. SILDENAFIL [Concomitant]
     Active Substance: SILDENAFIL
     Indication: Erectile dysfunction
     Dosage: 100MG AS NEEDED, VERY SELDOM USAGE
     Dates: start: 2018
  10. CIALIS [Concomitant]
     Active Substance: TADALAFIL
     Indication: Erectile dysfunction
     Dosage: 10MG AS NEEDED
     Dates: start: 2018
  11. METFORMIN [Concomitant]
     Active Substance: METFORMIN HYDROCHLORIDE
     Indication: Blood glucose abnormal
     Dosage: 500MG/DAY
     Dates: start: 2017, end: 2018
  12. Amphetamine Dextroamphetamine ER [Concomitant]
     Indication: Attention deficit hyperactivity disorder
     Dosage: 30MG DAILY, AS NEEDED
     Dates: start: 2012
  13. Unique E [Concomitant]
     Indication: Antioxidant therapy
     Dosage: 400IU/DAY
     Dates: start: 2000

REACTIONS (1)
  - Prostate cancer [Recovered/Resolved]
